FAERS Safety Report 12398269 (Version 6)
Quarter: 2019Q3

REPORT INFORMATION
  Report Type: Spontaneous
  Country: US (occurrence: US)
  Receive Date: 20160524
  Receipt Date: 20190927
  Transmission Date: 20191004
  Serious: Yes (Hospitalization, Other)
  Sender: FDA-Public Use
  Company Number: US-PFIZER INC-2016240342

PATIENT
  Age: 82 Year
  Sex: Male
  Weight: 87.98 kg

DRUGS (5)
  1. METFORMIN [Concomitant]
     Active Substance: METFORMIN HYDROCHLORIDE
     Dosage: 750 MG, 1X/DAY
     Dates: start: 2016
  2. METOPROLOL. [Concomitant]
     Active Substance: METOPROLOL
     Dosage: 50 MG, DAILY (25 MG 2 PER DAY)
     Dates: start: 2015
  3. LYRICA [Suspect]
     Active Substance: PREGABALIN
     Indication: PAIN IN EXTREMITY
     Dosage: 100 MG MORNING AND 200 MG EVENING
     Dates: start: 201311
  4. METOPROLOL. [Concomitant]
     Active Substance: METOPROLOL
     Dosage: UNK
     Dates: start: 201406
  5. LYRICA [Suspect]
     Active Substance: PREGABALIN
     Indication: POST HERPETIC NEURALGIA
     Dosage: 200 MG, 2X/DAY
     Dates: start: 2014

REACTIONS (11)
  - Suicidal ideation [Recovered/Resolved]
  - Extrasystoles [Recovered/Resolved]
  - Somnolence [Recovered/Resolved]
  - Dizziness [Not Recovered/Not Resolved]
  - Memory impairment [Not Recovered/Not Resolved]
  - Balance disorder [Not Recovered/Not Resolved]
  - Anxiety [Not Recovered/Not Resolved]
  - Dementia Alzheimer^s type [Unknown]
  - Speech disorder [Not Recovered/Not Resolved]
  - Stress [Unknown]
  - Gait disturbance [Not Recovered/Not Resolved]

NARRATIVE: CASE EVENT DATE: 2014
